FAERS Safety Report 13240575 (Version 2)
Quarter: 2017Q4

REPORT INFORMATION
  Report Type: Spontaneous
  Country: IT (occurrence: IT)
  Receive Date: 20170216
  Receipt Date: 20171006
  Transmission Date: 20180320
  Serious: Yes (Life-Threatening)
  Sender: FDA-Public Use
  Company Number: IT-JNJFOC-20170200225

PATIENT
  Age: 66 Year
  Sex: Male

DRUGS (5)
  1. PALEXIA [Concomitant]
     Active Substance: TAPENTADOL HYDROCHLORIDE
     Indication: PRODUCT USED FOR UNKNOWN INDICATION
     Route: 048
     Dates: start: 20161220
  2. CONGESCOR [Concomitant]
     Active Substance: BISOPROLOL
     Indication: PRODUCT USED FOR UNKNOWN INDICATION
     Route: 065
  3. SPORANOX [Suspect]
     Active Substance: ITRACONAZOLE
     Indication: MUCOSITIS MANAGEMENT
     Route: 048
     Dates: start: 20161221, end: 20161223
  4. IVEMEND [Suspect]
     Active Substance: FOSAPREPITANT DIMEGLUMINE
     Indication: PROPHYLAXIS OF NAUSEA AND VOMITING
     Route: 042
     Dates: start: 20161223, end: 20161223
  5. CARDIOASPIRIN [Concomitant]
     Active Substance: ASPIRIN
     Indication: PRODUCT USED FOR UNKNOWN INDICATION
     Route: 065

REACTIONS (6)
  - Urticaria [Recovered/Resolved]
  - Hypotension [Recovered/Resolved]
  - Paraesthesia [Recovered/Resolved]
  - Loss of consciousness [Recovered/Resolved]
  - Anaphylactic shock [Recovered/Resolved]
  - Asthenia [Recovered/Resolved]

NARRATIVE: CASE EVENT DATE: 20161222
